FAERS Safety Report 4327997-2 (Version None)
Quarter: 2004Q1

REPORT INFORMATION
  Report Type: 
  Country: None (occurrence: None)
  Receive Date: 20040325
  Receipt Date: 20010122
  Transmission Date: 20041129
  Serious: Yes (Hospitalization)
  Sender: FDA-Public Use
  Company Number: KII-2001-0007968

PATIENT
  Sex: Female

DRUGS (1)
  1. OXYCONTIN [Suspect]
     Indication: PAIN
     Dosage: 200 MG, Q8H

REACTIONS (3)
  - FALL [None]
  - INJURY [None]
  - OSTEOMYELITIS [None]
